FAERS Safety Report 8287769-3 (Version None)
Quarter: 2012Q2

REPORT INFORMATION
  Report Type: 
  Country: None (occurrence: None)
  Receive Date: 20120416
  Receipt Date: 20120411
  Transmission Date: 20120825
  Serious: Yes (Hospitalization, Other)
  Sender: FDA-Public Use
  Company Number: US-MERCK-1103USA00992

PATIENT
  Age: 56 Year
  Sex: Female

DRUGS (5)
  1. FOSAMAX [Suspect]
     Indication: OSTEOPENIA
     Route: 048
     Dates: start: 19950101, end: 20001201
  2. ALENDRONATE SODIUM [Suspect]
     Indication: OSTEOPENIA
     Route: 048
     Dates: start: 20080301, end: 20090701
  3. CALCIUM (UNSPECIFIED) [Concomitant]
     Indication: OSTEOPENIA
     Route: 065
     Dates: start: 20060101
  4. VITAMIN D (UNSPECIFIED) [Concomitant]
     Indication: OSTEOPENIA
     Route: 065
     Dates: start: 20090101
  5. FOSAMAX [Suspect]
     Route: 048
     Dates: start: 20010101, end: 20080201

REACTIONS (7)
  - TOOTH DISORDER [None]
  - GASTROINTESTINAL DISORDER [None]
  - BREAST CANCER [None]
  - FRACTURE [None]
  - FEMUR FRACTURE [None]
  - ATRIAL FIBRILLATION [None]
  - LOW TURNOVER OSTEOPATHY [None]
